FAERS Safety Report 4897912-1 (Version None)
Quarter: 2006Q1

REPORT INFORMATION
  Report Type: 
  Country: None (occurrence: None)
  Receive Date: 20060130
  Receipt Date: 20060123
  Transmission Date: 20060701
  Serious: Yes (Hospitalization)
  Sender: FDA-Public Use
  Company Number: 2006BH001027

PATIENT
  Age: 65 Year
  Sex: Male

DRUGS (16)
  1. ADENOSINE [Suspect]
     Dosage: 82.5 MG; EVERY DAY; IV
     Route: 042
     Dates: start: 20051122, end: 20051122
  2. BMS068645 [Suspect]
     Dosage: 100 UG; EVERY DAY; IV
     Route: 042
     Dates: start: 20051122, end: 20051122
  3. SALINE [Concomitant]
  4. IMDUR [Concomitant]
  5. ZANTAC [Concomitant]
  6. TERAZOSIN [Concomitant]
  7. ZOCOR [Concomitant]
  8. ZOLOFT [Concomitant]
  9. LISINOPRIL [Concomitant]
  10. TOPROL-XL [Concomitant]
  11. PLAVIX [Concomitant]
  12. PLETAL [Concomitant]
  13. FISH OIL [Concomitant]
  14. COENZYME Q10 [Concomitant]
  15. COUMADIN [Concomitant]
  16. LANOXIN [Concomitant]

REACTIONS (10)
  - ACTIVATED PARTIAL THROMBOPLASTIN TIME PROLONGED [None]
  - ACUTE CORONARY SYNDROME [None]
  - CORONARY ARTERY OCCLUSION [None]
  - HEART RATE INCREASED [None]
  - INFUSION RELATED REACTION [None]
  - MYOCARDIAL INFARCTION [None]
  - PROTHROMBIN TIME PROLONGED [None]
  - SINUS BRADYCARDIA [None]
  - SUPRAVENTRICULAR EXTRASYSTOLES [None]
  - VENTRICULAR EXTRASYSTOLES [None]
